FAERS Safety Report 15574149 (Version 2)
Quarter: 2019Q1

REPORT INFORMATION
  Report Type: Spontaneous
  Country: US (occurrence: US)
  Receive Date: 20181101
  Receipt Date: 20190215
  Transmission Date: 20190417
  Serious: Yes (Other)
  Sender: FDA-Public Use
  Company Number: US-TEVA-2018-US-969468

PATIENT
  Sex: Female

DRUGS (2)
  1. CLONAZEPAM ACTAVIS [Suspect]
     Active Substance: CLONAZEPAM
     Indication: OBSESSIVE-COMPULSIVE DISORDER
  2. CLONAZEPAM ACTAVIS [Suspect]
     Active Substance: CLONAZEPAM
     Indication: ANXIETY

REACTIONS (15)
  - Food allergy [Unknown]
  - Insomnia [Unknown]
  - Weight decreased [Unknown]
  - Withdrawal syndrome [Unknown]
  - Product substitution issue [Unknown]
  - Victim of sexual abuse [Unknown]
  - Pain in extremity [Unknown]
  - Suicidal ideation [Unknown]
  - Hair colour changes [Unknown]
  - Joint dislocation [Unknown]
  - Aggression [Unknown]
  - Depressed mood [Unknown]
  - Nightmare [Unknown]
  - Hallucination, auditory [Unknown]
  - Contusion [Unknown]

NARRATIVE: CASE EVENT DATE: 201710
